FAERS Safety Report 8283546-8 (Version None)
Quarter: 2012Q2

REPORT INFORMATION
  Report Type: 
  Country: None (occurrence: None)
  Receive Date: 20120413
  Receipt Date: 20120403
  Transmission Date: 20120825
  Serious: Yes (Hospitalization)
  Sender: FDA-Public Use
  Company Number: DE-BRISTOL-MYERS SQUIBB COMPANY-16510562

PATIENT
  Age: 68 Year
  Sex: Female
  Weight: 67 kg

DRUGS (5)
  1. LEUCOVORIN CALCIUM [Concomitant]
     Indication: COLORECTAL CANCER METASTATIC
     Route: 042
     Dates: start: 20101214, end: 20110328
  2. MINOCYCLINE HCL [Concomitant]
     Indication: PREMEDICATION
     Dates: start: 20110125, end: 20110125
  3. IRINOTECAN HCL [Concomitant]
     Indication: COLORECTAL CANCER METASTATIC
     Route: 042
     Dates: start: 20101214, end: 20110328
  4. ERBITUX [Suspect]
     Indication: COLORECTAL CANCER METASTATIC
     Dosage: IV,250MG/M2,ONCE:01FEB11-01FEB11,15FEB11-15FEB11. IV,250MG/M2,1/1 WK:01MAR11-05APR11.
     Route: 042
     Dates: start: 20110125, end: 20110405
  5. FLUOROURACIL [Concomitant]
     Indication: COLORECTAL CANCER METASTATIC
     Route: 042
     Dates: start: 20101214, end: 20110328

REACTIONS (1)
  - SYNCOPE [None]
